FAERS Safety Report 16085439 (Version 2)
Quarter: 2019Q2

REPORT INFORMATION
  Report Type: Report from Study
  Country: None (occurrence: US)
  Receive Date: 20190318
  Receipt Date: 20190409
  Transmission Date: 20190711
  Serious: Yes (Hospitalization, Other)
  Sender: FDA-Public Use
  Company Number: US-ABBVIE-19S-163-2700876-00

PATIENT
  Age: 68 Year
  Sex: Female
  Weight: 99.43 kg

DRUGS (10)
  1. ROPINIROLE. [Concomitant]
     Active Substance: ROPINIROLE
     Indication: PERIODIC LIMB MOVEMENT DISORDER
  2. STRATTERA [Concomitant]
     Active Substance: ATOMOXETINE HYDROCHLORIDE
     Indication: ATTENTION DEFICIT/HYPERACTIVITY DISORDER
  3. PROCAINAMIDE [Concomitant]
     Active Substance: PROCAINAMIDE HYDROCHLORIDE
     Indication: PRODUCT USED FOR UNKNOWN INDICATION
  4. ONDANSETRON [Concomitant]
     Active Substance: ONDANSETRON
     Indication: PRODUCT USED FOR UNKNOWN INDICATION
  5. BYETTA [Concomitant]
     Active Substance: EXENATIDE
     Indication: TYPE 2 DIABETES MELLITUS
  6. METFORMIN [Concomitant]
     Active Substance: METFORMIN HYDROCHLORIDE
     Indication: TYPE 2 DIABETES MELLITUS
  7. VENTOLIN [Concomitant]
     Active Substance: ALBUTEROL SULFATE
     Indication: ASTHMA
  8. MELOXICAM. [Concomitant]
     Active Substance: MELOXICAM
     Indication: ARTHRITIS
  9. LORAZEPAM. [Concomitant]
     Active Substance: LORAZEPAM
     Indication: PERIODIC LIMB MOVEMENT DISORDER
  10. SYNTHROID [Suspect]
     Active Substance: LEVOTHYROXINE SODIUM
     Indication: HYPOTHYROIDISM
     Route: 048
     Dates: start: 1964

REACTIONS (20)
  - Respiratory failure [Recovered/Resolved]
  - Cardiomegaly [Unknown]
  - Sleep apnoea syndrome [Unknown]
  - Hypotension [Unknown]
  - Pneumonia fungal [Unknown]
  - Sepsis [Recovered/Resolved]
  - Fungal infection [Recovered/Resolved]
  - Pneumonia fungal [Recovered/Resolved]
  - Post-traumatic stress disorder [Not Recovered/Not Resolved]
  - Pneumonia fungal [Unknown]
  - Chronic obstructive pulmonary disease [Not Recovered/Not Resolved]
  - Respiratory disorder [Recovered/Resolved]
  - Tooth abscess [Recovered/Resolved]
  - Glycosylated haemoglobin increased [Recovered/Resolved]
  - Tooth fracture [Recovered/Resolved]
  - Psoriasis [Recovered/Resolved]
  - Metabolic acidosis [Recovered/Resolved]
  - Pleural effusion [Unknown]
  - Traumatic lung injury [Unknown]
  - Pneumonia fungal [Unknown]

NARRATIVE: CASE EVENT DATE: 2011
